FAERS Safety Report 4754791-0 (Version None)
Quarter: 2005Q3

REPORT INFORMATION
  Report Type: 
  Country: None (occurrence: None)
  Receive Date: 20050825
  Receipt Date: 20050816
  Transmission Date: 20060218
  Serious: Yes (Hospitalization)
  Sender: FDA-Public Use
  Company Number: 216669

PATIENT
  Age: 71 Year
  Sex: Male
  Weight: 62 kg

DRUGS (5)
  1. MABTHERA(RITUXIMAB) CONC FOR SOLUTION FOR INFUSION [Suspect]
     Indication: LYMPHOMA
     Dosage: 630 MG, QD, INTRAVENOUS
     Route: 042
     Dates: start: 20050609, end: 20050720
  2. ONCOVIN [Suspect]
     Indication: LYMPHOMA
     Dosage: 2 MG, QD, INTRAVENOUS
     Route: 042
     Dates: start: 20050609, end: 20050720
  3. CYCLOPHOSPHAMIDE [Suspect]
     Indication: LYMPHOMA
     Dosage: 1260 MG, QD, INTRAVENOUS
     Route: 042
     Dates: start: 20050609, end: 20050720
  4. PREDNISONE [Suspect]
     Indication: LYMPHOMA
     Dosage: 100 MG, QD, ORAL
     Route: 048
     Dates: start: 20050609, end: 20050720
  5. ADRIABLASTINE(DOXORUBICIN, DOXORUBICIN HYDROCHLORIDE) [Suspect]
     Indication: LYMPHOMA
     Dosage: 85 MG, QD, INTRAVENOUS
     Route: 042
     Dates: start: 20050609, end: 20050720

REACTIONS (6)
  - FEBRILE NEUTROPENIA [None]
  - HAEMATOCRIT DECREASED [None]
  - HAEMOGLOBIN DECREASED [None]
  - PLATELET COUNT DECREASED [None]
  - RED BLOOD CELL COUNT DECREASED [None]
  - WHITE BLOOD CELL COUNT DECREASED [None]
